FAERS Safety Report 7356078-9 (Version None)
Quarter: 2011Q1

REPORT INFORMATION
  Report Type: 
  Country: None (occurrence: None)
  Receive Date: 20110316
  Receipt Date: 20110310
  Transmission Date: 20110831
  Serious: Yes (Other)
  Sender: FDA-Public Use
  Company Number: US-ABBOTT-11P-163-0703126-00

PATIENT
  Sex: Male
  Weight: 70.37 kg

DRUGS (8)
  1. PROZAC [Suspect]
     Indication: ABNORMAL BEHAVIOUR
     Dosage: VERY LOW DOSE
     Route: 048
     Dates: start: 20101028, end: 20101028
  2. DIVALPROEX SODIUM [Suspect]
  3. WIHPAT? [Concomitant]
     Indication: PRODUCT USED FOR UNKNOWN INDICATION
  4. DIVALPROEX SODIUM [Suspect]
     Indication: CONVULSION
     Route: 048
     Dates: start: 20100301
  5. DEPAKOTE ER [Suspect]
     Indication: CONVULSION
     Dates: start: 20081201, end: 20101001
  6. DEPAKOTE ER [Suspect]
     Indication: GRAND MAL CONVULSION
     Dosage: DOSE DECREASED
  7. DEPAKOTE [Suspect]
     Indication: GRAND MAL CONVULSION
     Route: 048
  8. DEPAKOTE [Suspect]
     Indication: CONVULSION
     Route: 048
     Dates: start: 20101101

REACTIONS (3)
  - CONVULSION [None]
  - GRAND MAL CONVULSION [None]
  - TREATMENT NONCOMPLIANCE [None]
